FAERS Safety Report 24824031 (Version 1)
Quarter: 2025Q1

REPORT INFORMATION
  Report Type: Report from Study
  Country: US (occurrence: US)
  Receive Date: 20250109
  Receipt Date: 20250109
  Transmission Date: 20250409
  Serious: Yes (Other)
  Sender: SANDOZ
  Company Number: US-SANDOZ-SDZ2024US101912

PATIENT
  Age: 57 Year
  Sex: Female

DRUGS (1)
  1. HYRIMOZ [Suspect]
     Active Substance: ADALIMUMAB-ADAZ
     Indication: Product used for unknown indication
     Route: 058

REACTIONS (4)
  - Accident [Unknown]
  - Hand fracture [Unknown]
  - Circumstance or information capable of leading to medication error [Unknown]
  - Device use error [Unknown]

NARRATIVE: CASE EVENT DATE: 20250101
